FAERS Safety Report 6702667-1 (Version None)
Quarter: 2010Q2

REPORT INFORMATION
  Report Type: 
  Country: None (occurrence: None)
  Receive Date: 20100429
  Receipt Date: 20100415
  Transmission Date: 20101027
  Serious: Yes (Death)
  Sender: FDA-Public Use
  Company Number: DE-MYLANLABS-2010S1006514

PATIENT
  Age: 84 Year
  Sex: Female
  Weight: 62 kg

DRUGS (5)
  1. AMIODARONE [Suspect]
     Indication: ARRHYTHMIA
     Route: 048
     Dates: end: 20100314
  2. ENALAPRIL MALEATE [Concomitant]
     Indication: DRUG USE FOR UNKNOWN INDICATION
  3. BISOPROLOL FUMARATE [Concomitant]
     Indication: DRUG USE FOR UNKNOWN INDICATION
  4. LEVOTHYROXINE SODIUM [Concomitant]
     Indication: DRUG USE FOR UNKNOWN INDICATION
  5. MARCUMAR [Concomitant]
     Indication: DRUG USE FOR UNKNOWN INDICATION

REACTIONS (4)
  - DISSEMINATED INTRAVASCULAR COAGULATION [None]
  - HAEMORRHAGIC ANAEMIA [None]
  - HEPATORENAL SYNDROME [None]
  - THROMBOCYTOPENIA [None]
